FAERS Safety Report 4932794-0 (Version None)
Quarter: 2006Q1

REPORT INFORMATION
  Report Type: 
  Country: None (occurrence: None)
  Receive Date: 20060302
  Receipt Date: 20060302
  Transmission Date: 20060701
  Serious: No
  Sender: FDA-Public Use
  Company Number: None

PATIENT
  Age: 61 Year
  Sex: Male

DRUGS (1)
  1. ZONEGRAN [Suspect]
     Dosage: 100MG 3 CAPS   BID   PO
     Route: 048
     Dates: start: 20060201, end: 20060220

REACTIONS (1)
  - RASH [None]
